FAERS Safety Report 8101685-9 (Version None)
Quarter: 2012Q1

REPORT INFORMATION
  Report Type: 
  Country: None (occurrence: None)
  Receive Date: 20120129
  Receipt Date: 20111004
  Transmission Date: 20120608
  Serious: No
  Sender: FDA-Public Use
  Company Number: US-ABBOTT-11P-163-0858687-00

PATIENT
  Age: 64 Year
  Sex: Female

DRUGS (6)
  1. SYNTHROID [Concomitant]
     Indication: THYROID DISORDER
  2. ACETAMINOPHEN [Concomitant]
     Indication: PRODUCT USED FOR UNKNOWN INDICATION
     Dosage: PRN
  3. ASACOL [Concomitant]
     Indication: CROHN'S DISEASE
     Dosage: 3 TAB TID
  4. PREDNISONE TAB [Concomitant]
     Indication: CROHN'S DISEASE
     Dosage: TAPERING DOSE CURRENTLY 5 MG DAILY
     Dates: start: 20110501, end: 20111007
  5. TOVIAZ [Concomitant]
     Indication: URINARY INCONTINENCE
  6. HUMIRA [Suspect]
     Indication: CROHN'S DISEASE
     Dates: start: 20110809

REACTIONS (3)
  - MYALGIA [None]
  - PAIN [None]
  - WRONG TECHNIQUE IN DRUG USAGE PROCESS [None]
